FAERS Safety Report 6179309-X (Version None)
Quarter: 2009Q2

REPORT INFORMATION
  Report Type: 
  Country: None (occurrence: None)
  Receive Date: 20090505
  Receipt Date: 20090427
  Transmission Date: 20091009
  Serious: Yes (Death)
  Sender: FDA-Public Use
  Company Number: JP-ABBOTT-09P-087-0569794-00

PATIENT
  Age: 78 Year
  Sex: Male

DRUGS (8)
  1. LEUPLIN SR FOR INJECTION 11.25 MG [Suspect]
     Indication: PROSTATE CANCER STAGE III
     Route: 058
     Dates: start: 20060406, end: 20070122
  2. LEUPLIN SR FOR INJECTION 11.25 MG [Suspect]
     Route: 058
     Dates: start: 20070523, end: 20070820
  3. CASODEX [Concomitant]
     Indication: PROSTATE CANCER STAGE III
     Route: 048
     Dates: start: 20060314, end: 20061126
  4. UFT [Concomitant]
     Indication: URETERIC CANCER
     Route: 048
     Dates: start: 20060314, end: 20070523
  5. SALOBEL [Concomitant]
     Indication: GOUT
     Route: 048
     Dates: start: 20060310
  6. TSURMURA DAIKENTYUTO [Concomitant]
     Indication: INTESTINAL OBSTRUCTION
     Route: 048
     Dates: start: 20060310
  7. LASIX [Concomitant]
     Indication: RENAL IMPAIRMENT
     Route: 048
     Dates: start: 20060310
  8. LASIX [Concomitant]
     Indication: SOLITARY KIDNEY

REACTIONS (1)
  - MALIGNANT NEOPLASM PROGRESSION [None]
